FAERS Safety Report 10478892 (Version 4)
Quarter: 2014Q4

REPORT INFORMATION
  Report Type: Spontaneous
  Country: US (occurrence: US)
  Receive Date: 20140926
  Receipt Date: 20141023
  Transmission Date: 20150528
  Serious: Yes (Hospitalization, Other)
  Sender: FDA-Public Use
  Company Number: US-PFIZER INC-2014241433

PATIENT
  Age: 64 Year
  Sex: Female

DRUGS (3)
  1. METHOTREXATE SODIUM. [Suspect]
     Active Substance: METHOTREXATE SODIUM
     Dosage: 6 TABLETS, ONCE A WEEK
     Dates: end: 20140812
  2. XELJANZ [Suspect]
     Active Substance: TOFACITINIB CITRATE
     Indication: VASCULITIS
     Dosage: 5 MG, 2X/DAY
     Route: 048
     Dates: start: 201403, end: 20140812
  3. XELJANZ [Suspect]
     Active Substance: TOFACITINIB CITRATE
     Indication: ARTHRITIS

REACTIONS (7)
  - Urinary tract infection [Recovering/Resolving]
  - Delirium [Unknown]
  - Asthenia [Unknown]
  - Diarrhoea [Unknown]
  - Clostridium difficile infection [Recovering/Resolving]
  - Klebsiella infection [Recovering/Resolving]
  - Pyrexia [Recovering/Resolving]

NARRATIVE: CASE EVENT DATE: 20140812
